FAERS Safety Report 23555263 (Version 1)
Quarter: 2024Q1

REPORT INFORMATION
  Report Type: Spontaneous
  Country: US (occurrence: US)
  Receive Date: 20240222
  Receipt Date: 20240222
  Transmission Date: 20240410
  Serious: No
  Sender: FDA-Public Use
  Company Number: US-BAYER-2024A012885

PATIENT

DRUGS (2)
  1. CLARITIN [Suspect]
     Active Substance: LORATADINE
     Indication: Asthma
     Route: 048
  2. CLARITIN [Suspect]
     Active Substance: LORATADINE
     Indication: Cough
     Route: 048

REACTIONS (4)
  - Incorrect product administration duration [Unknown]
  - Drug effective for unapproved indication [Unknown]
  - Musculoskeletal pain [Unknown]
  - Drug ineffective [Unknown]
